FAERS Safety Report 10276283 (Version 2)
Quarter: 2014Q4

REPORT INFORMATION
  Report Type: Spontaneous
  Country: US (occurrence: None)
  Receive Date: 20140630
  Receipt Date: 20141031
  Transmission Date: 20150528
  Serious: Yes (Other)
  Sender: FDA-Public Use
  Company Number: 2014-US-007848

PATIENT
  Age: 31 Year
  Sex: Female

DRUGS (2)
  1. XYREM [Suspect]
     Active Substance: SODIUM OXYBATE
     Indication: CATAPLEXY
     Dosage: 1.5 G, BID, ORAL
     Route: 048
     Dates: start: 200612
  2. XYREM [Suspect]
     Active Substance: SODIUM OXYBATE
     Indication: NARCOLEPSY
     Dosage: 1.5 G, BID, ORAL
     Route: 048
     Dates: start: 200612

REACTIONS (10)
  - Swelling face [None]
  - Dyspnoea [None]
  - Headache [None]
  - Tremor [None]
  - Anger [None]
  - Fatigue [None]
  - Blood glucose increased [None]
  - Mood swings [None]
  - Vomiting [None]
  - Crying [None]

NARRATIVE: CASE EVENT DATE: 2014
